FAERS Safety Report 12746331 (Version 5)
Quarter: 2020Q3

REPORT INFORMATION
  Report Type: Report from Study
  Country: CA (occurrence: CA)
  Receive Date: 20160915
  Receipt Date: 20170810
  Transmission Date: 20201104
  Serious: Yes (Life-Threatening, Hospitalization)
  Sender: FDA-Public Use
  Company Number: CA-PFIZER INC-2016400683

PATIENT
  Age: 74 Year
  Sex: Female

DRUGS (5)
  1. CARBOPLATIN. [Suspect]
     Active Substance: CARBOPLATIN
     Indication: SMALL CELL LUNG CANCER
     Dosage: AUC 5MG/M2 D1
     Route: 042
     Dates: start: 20160802
  2. PROPRANOLOL [Concomitant]
     Active Substance: PROPRANOLOL HYDROCHLORIDE
     Dosage: UNK
     Dates: start: 20160817, end: 20160825
  3. DURVALUMAB. [Suspect]
     Active Substance: DURVALUMAB
     Indication: SMALL CELL LUNG CANCER
     Dosage: 1335MG DAILY IN 21 DAY CYCLE (15MG/KG DAY 1?21)
     Route: 042
     Dates: start: 20160802, end: 20160803
  4. TREMELIMUMAB. [Suspect]
     Active Substance: TREMELIMUMAB
     Indication: SMALL CELL LUNG CANCER
     Dosage: 268MG DAILY IN 21 DAY CYCLE (3MG/KG Q6WX1)
     Route: 042
     Dates: start: 20160802, end: 20160803
  5. ETOPOSIDE. [Suspect]
     Active Substance: ETOPOSIDE
     Indication: SMALL CELL LUNG CANCER
     Dosage: 200MG DAILY FOR 21 DAY CYCLE (100MG/M2, DAY 1?3)
     Route: 042
     Dates: start: 20160802, end: 20160803

REACTIONS (7)
  - Cardiac failure [Unknown]
  - Myocarditis [Unknown]
  - Diarrhoea [Not Recovered/Not Resolved]
  - Nausea [Recovering/Resolving]
  - Hyperthyroidism [Unknown]
  - Febrile neutropenia [Unknown]
  - Vomiting [Recovering/Resolving]

NARRATIVE: CASE EVENT DATE: 20160817
